FAERS Safety Report 26058164 (Version 1)
Quarter: 2025Q4

REPORT INFORMATION
  Report Type: Spontaneous
  Country: EU (occurrence: EU)
  Receive Date: 20251118
  Receipt Date: 20251118
  Transmission Date: 20260118
  Serious: Yes (Life-Threatening, Other)
  Sender: BOEHRINGER INGELHEIM
  Company Number: None

PATIENT
  Age: 42 Year
  Sex: Female
  Weight: 60 kg

DRUGS (1)
  1. OFEV [Suspect]
     Active Substance: NINTEDANIB
     Indication: Idiopathic pulmonary fibrosis
     Dates: start: 20250301, end: 20251001

REACTIONS (1)
  - Colitis erosive [Recovered/Resolved]

NARRATIVE: CASE EVENT DATE: 20250901
